FAERS Safety Report 20576980 (Version 1)
Quarter: 2022Q1

REPORT INFORMATION
  Report Type: Spontaneous
  Country: DE (occurrence: DE)
  Receive Date: 20220310
  Receipt Date: 20220310
  Transmission Date: 20220423
  Serious: Yes (Hospitalization, Other)
  Sender: FDA-Public Use
  Company Number: DE-002147023-PHNU2002DE02058

PATIENT
  Age: 36 Year
  Sex: Male
  Weight: 98 kg

DRUGS (3)
  1. CLOZAPINE [Suspect]
     Active Substance: CLOZAPINE
     Indication: Schizophrenia
     Dosage: 500 MILLIGRAM, QD,100MG-100MG-100MG-200MG
     Route: 048
     Dates: start: 1992, end: 200208
  2. MARCUMAR [Concomitant]
     Active Substance: PHENPROCOUMON
     Indication: Deep vein thrombosis
     Dosage: UNK
     Route: 048
     Dates: start: 200207
  3. HEPARIN [Concomitant]
     Active Substance: HEPARIN SODIUM
     Indication: Deep vein thrombosis
     Dosage: UNK

REACTIONS (3)
  - Deep vein thrombosis [Recovered/Resolved]
  - Swelling [Recovered/Resolved]
  - Thrombocytopenia [Recovered/Resolved]

NARRATIVE: CASE EVENT DATE: 20020502
